FAERS Safety Report 8474945-X (Version None)
Quarter: 2012Q2

REPORT INFORMATION
  Report Type: 
  Country: None (occurrence: None)
  Receive Date: 20120628
  Receipt Date: 20120622
  Transmission Date: 20120825
  Serious: Yes (Other)
  Sender: FDA-Public Use
  Company Number: PHEH2012US012719

PATIENT
  Sex: Female

DRUGS (1)
  1. GILENYA [Suspect]
     Dosage: FOETAL EXPOSURE VIA FATHER

REACTIONS (2)
  - ABORTION SPONTANEOUS [None]
  - EXPOSURE VIA FATHER [None]
